FAERS Safety Report 11020749 (Version 2)
Quarter: 2015Q2

REPORT INFORMATION
  Report Type: Spontaneous
  Country: US (occurrence: US)
  Receive Date: 20150413
  Receipt Date: 20150427
  Transmission Date: 20150821
  Serious: Yes (Hospitalization)
  Sender: FDA-Public Use
  Company Number: US-BIOGENIDEC-2015BI045007

PATIENT
  Age: 40 Year
  Sex: Male

DRUGS (1)
  1. AVONEX [Suspect]
     Active Substance: INTERFERON BETA-1A
     Indication: MULTIPLE SCLEROSIS
     Route: 030
     Dates: start: 20150328, end: 20150329

REACTIONS (2)
  - Asthenia [Recovered/Resolved with Sequelae]
  - Abasia [Recovered/Resolved with Sequelae]

NARRATIVE: CASE EVENT DATE: 20150328
